FAERS Safety Report 5721454-4 (Version None)
Quarter: 2008Q2

REPORT INFORMATION
  Report Type: 
  Country: None (occurrence: None)
  Receive Date: 20080429
  Receipt Date: 20080422
  Transmission Date: 20081010
  Serious: Yes (Other)
  Sender: FDA-Public Use
  Company Number: IE-ASTRAZENECA-2008GB00784

PATIENT
  Age: 73 Year
  Sex: Male

DRUGS (2)
  1. NEXIUM [Suspect]
     Dosage: 80 MG IN 100MG SODIUM CHLORIDE; INFUSED AT 8MG/HR
     Route: 042
     Dates: start: 20080416, end: 20080417
  2. UNSPECIFIED [Concomitant]

REACTIONS (1)
  - RENAL FAILURE [None]
